FAERS Safety Report 9031511 (Version 1)
Quarter: 2013Q1

REPORT INFORMATION
  Report Type: Report from Study
  Country: US (occurrence: US)
  Receive Date: 20130124
  Receipt Date: 20130124
  Transmission Date: 20140127
  Serious: No
  Sender: FDA-Public Use
  Company Number: US-VERTEX PHARMACEUTICALS INC.-2013-001059

PATIENT
  Sex: Male
  Weight: 107 kg

DRUGS (4)
  1. VX-950 (TELAPREVIR) [Suspect]
     Indication: HEPATITIS C
     Dosage: 750 MG, TID
     Route: 048
  2. PEGASYS [Suspect]
     Indication: HEPATITIS C
  3. RIBAPAK [Suspect]
     Indication: HEPATITIS C
     Dosage: 1200 MG, QD
  4. LOSARTAN + HIDROCLOROTIAZIDA [Concomitant]
     Dosage: 100-12.5

REACTIONS (1)
  - Headache [Unknown]
